FAERS Safety Report 6825581-X (Version None)
Quarter: 2010Q3

REPORT INFORMATION
  Report Type: 
  Country: None (occurrence: None)
  Receive Date: 20100708
  Receipt Date: 20070503
  Transmission Date: 20110219
  Serious: Yes (Hospitalization, Other)
  Sender: FDA-Public Use
  Company Number: US-PFIZER INC-2006147312

PATIENT
  Sex: Female
  Weight: 95.3 kg

DRUGS (21)
  1. CHANTIX [Suspect]
     Indication: SMOKING CESSATION THERAPY
     Route: 048
     Dates: start: 20061025
  2. PREDNISONE [Suspect]
     Indication: BRONCHITIS
  3. PREDNISONE [Suspect]
     Indication: PNEUMONIA
  4. VICODIN [Concomitant]
     Route: 048
  5. XANAX [Concomitant]
     Route: 048
  6. UNIVASC [Concomitant]
     Route: 048
  7. CITALOPRAM HYDROBROMIDE [Concomitant]
     Route: 048
  8. ALDACTONE [Concomitant]
     Route: 048
  9. KLOR-CON [Concomitant]
     Route: 048
  10. BUMEX [Concomitant]
     Route: 048
  11. PRILOSEC [Concomitant]
     Route: 048
  12. LOPID [Concomitant]
     Route: 048
  13. FLEXERIL [Concomitant]
     Route: 048
  14. BENTYL [Concomitant]
     Route: 048
  15. DURAGESIC-100 [Concomitant]
     Route: 048
  16. ACTOS [Concomitant]
     Route: 048
  17. PREMARIN [Concomitant]
     Route: 048
  18. COMPAZINE [Concomitant]
     Route: 048
  19. TOPAMAX [Concomitant]
     Route: 048
  20. ZETIA [Concomitant]
     Route: 048
  21. METOLAZONE [Concomitant]
     Route: 048

REACTIONS (5)
  - BLOOD GLUCOSE INCREASED [None]
  - BRONCHITIS [None]
  - INCREASED APPETITE [None]
  - NAUSEA [None]
  - PNEUMONIA [None]
